FAERS Safety Report 19074372 (Version 2)
Quarter: 2021Q2

REPORT INFORMATION
  Report Type: Spontaneous
  Country: JP (occurrence: JP)
  Receive Date: 20210330
  Receipt Date: 20210419
  Transmission Date: 20210717
  Serious: Yes (Other)
  Sender: FDA-Public Use
  Company Number: NVSC2021JP072260

PATIENT
  Age: 72 Year
  Sex: Female
  Weight: 71 kg

DRUGS (24)
  1. NOVASTAN [Suspect]
     Active Substance: ARGATROBAN
     Dosage: 2 MG/KG (1/1MINUTE)
     Route: 041
     Dates: start: 20160720, end: 20160720
  2. NAFAMOSTAT MESILATE [Suspect]
     Active Substance: NAFAMOSTAT MESYLATE
     Dosage: UNK
     Route: 065
  3. NOVASTAN [Suspect]
     Active Substance: ARGATROBAN
     Dosage: 3 MG/KG (1/1MINUTE)
     Route: 041
     Dates: start: 20160720, end: 20160720
  4. NOVASTAN [Suspect]
     Active Substance: ARGATROBAN
     Dosage: 15 MG AT 12:31
     Route: 040
     Dates: start: 20160720, end: 20160720
  5. WARFARIN POTASSIUM [Concomitant]
     Active Substance: WARFARIN POTASSIUM
     Indication: PRODUCT USED FOR UNKNOWN INDICATION
     Dosage: UNK
     Route: 065
  6. NOVASTAN [Suspect]
     Active Substance: ARGATROBAN
     Dosage: 0.15 MG/KG
     Route: 040
  7. NAFAMOSTAT MESILATE [Suspect]
     Active Substance: NAFAMOSTAT MESYLATE
     Dosage: 100 MG AT 13:00
     Route: 042
     Dates: start: 20160720, end: 20160720
  8. NOVASTAN [Suspect]
     Active Substance: ARGATROBAN
     Dosage: 2 MG/KG (1/1MINUTE)
     Route: 041
  9. NOVASTAN [Suspect]
     Active Substance: ARGATROBAN
     Dosage: 15 MG (10.35)
     Route: 040
     Dates: start: 20160720, end: 20160720
  10. NOVASTAN [Suspect]
     Active Substance: ARGATROBAN
     Dosage: 7.5 MG,(AT 12:05)
     Route: 040
     Dates: start: 20160720, end: 20160720
  11. NOVASTAN [Suspect]
     Active Substance: ARGATROBAN
     Dosage: 2 UG/KG/MIN AT 14:25
     Route: 040
  12. NOVASTAN [Suspect]
     Active Substance: ARGATROBAN
     Dosage: 1 UG/KG/MIN AT 14:40
     Route: 040
  13. NOVASTAN [Suspect]
     Active Substance: ARGATROBAN
     Indication: ANTICOAGULANT THERAPY
     Dosage: 0.2 MG/KG
     Route: 040
  14. NOVASTAN [Suspect]
     Active Substance: ARGATROBAN
     Dosage: 3.75 MG(11.14)
     Route: 040
     Dates: start: 20160720, end: 20160720
  15. NOVASTAN [Suspect]
     Active Substance: ARGATROBAN
     Dosage: 4 MG/KG (1/1MINUTE) 10.35?11.14
     Route: 041
     Dates: start: 20160720, end: 20160720
  16. NOVASTAN [Suspect]
     Active Substance: ARGATROBAN
     Dosage: 4 MICROGRAM PER KG/MIN AT 10.35
     Route: 041
  17. NAFAMOSTAT MESILATE [Suspect]
     Active Substance: NAFAMOSTAT MESYLATE
     Indication: ANTICOAGULANT THERAPY
     Dosage: 70 MG AT 13:00
     Route: 042
     Dates: start: 20160720, end: 20160720
  18. NOVASTAN [Suspect]
     Active Substance: ARGATROBAN
     Indication: HEPARIN-INDUCED THROMBOCYTOPENIA
     Dosage: 0.2 MICROMOLE PER KILOGRAM (1/1MINUTE)
     Route: 041
     Dates: start: 20160715
  19. NOVASTAN [Suspect]
     Active Substance: ARGATROBAN
     Dosage: 1 MG/KG (1/1MINUTE
     Route: 041
     Dates: start: 20160720, end: 20160720
  20. HEPARIN SODIUM. [Concomitant]
     Active Substance: HEPARIN SODIUM
     Indication: PRODUCT USED FOR UNKNOWN INDICATION
     Dosage: UNK
     Route: 065
     Dates: start: 20160704
  21. NOVASTAN [Suspect]
     Active Substance: ARGATROBAN
     Dosage: 0.2 UG/KG 1/1 MIN (10:35)
     Route: 041
     Dates: start: 20160715, end: 20160720
  22. NOVASTAN [Suspect]
     Active Substance: ARGATROBAN
     Dosage: 15 MG AT 12:19
     Route: 040
     Dates: start: 20160720, end: 20160720
  23. NOVASTAN [Suspect]
     Active Substance: ARGATROBAN
     Dosage: 3 UG/KG/MIN AT 12:48
     Route: 040
  24. NAFAMOSTAT MESILATE [Suspect]
     Active Substance: NAFAMOSTAT MESYLATE
     Indication: HEPARIN-INDUCED THROMBOCYTOPENIA
     Dosage: 30 MG, AT 13:00
     Route: 042
     Dates: start: 20160720, end: 20160720

REACTIONS (2)
  - Haemorrhage [Unknown]
  - Coagulation time prolonged [Unknown]
